FAERS Safety Report 9885767 (Version 4)
Quarter: 2014Q4

REPORT INFORMATION
  Report Type: Report from Study
  Country: US (occurrence: US)
  Receive Date: 20140210
  Receipt Date: 20141118
  Transmission Date: 20150529
  Serious: Yes (Death, Hospitalization, Other)
  Sender: FDA-Public Use
  Company Number: US-ALEXION PHARMACEUTICALS INC.-A201400377

PATIENT

DRUGS (2)
  1. SOLIRIS [Suspect]
     Active Substance: ECULIZUMAB
     Indication: HAEMOLYTIC URAEMIC SYNDROME
     Dosage: 900 MG, QW
     Route: 042
     Dates: start: 20140119
  2. SOLIRIS [Suspect]
     Active Substance: ECULIZUMAB
     Dosage: 1200 MG, Q2W
     Route: 042
     Dates: start: 20140119

REACTIONS (8)
  - Acute disseminated encephalomyelitis [Not Recovered/Not Resolved]
  - Infection [Not Recovered/Not Resolved]
  - Haemodialysis [Recovered/Resolved]
  - Packed red blood cell transfusion [Unknown]
  - Posterior reversible encephalopathy syndrome [Unknown]
  - Death [Fatal]
  - Leukoencephalopathy [Not Recovered/Not Resolved]
  - Cerebrovascular accident [Unknown]

NARRATIVE: CASE EVENT DATE: 20140120
